FAERS Safety Report 7437057-X (Version None)
Quarter: 2011Q2

REPORT INFORMATION
  Report Type: 
  Country: None (occurrence: None)
  Receive Date: 20110426
  Receipt Date: 20110413
  Transmission Date: 20111010
  Serious: Yes (Other)
  Sender: FDA-Public Use
  Company Number: PHFR2011GB02400

PATIENT
  Sex: Male

DRUGS (1)
  1. CLOZARIL [Suspect]
     Indication: SCHIZOPHRENIA
     Route: 048
     Dates: start: 20110301, end: 20110415

REACTIONS (3)
  - DIFFERENTIAL WHITE BLOOD CELL COUNT ABNORMAL [None]
  - EOSINOPHIL COUNT INCREASED [None]
  - PAIN IN EXTREMITY [None]
